FAERS Safety Report 14347141 (Version 1)
Quarter: 2018Q1

REPORT INFORMATION
  Report Type: Spontaneous
  Country: JP (occurrence: JP)
  Receive Date: 20180103
  Receipt Date: 20180103
  Transmission Date: 20180509
  Serious: Yes (Other)
  Sender: FDA-Public Use
  Company Number: JP-PFIZER INC-2017552015

PATIENT
  Age: 54 Year
  Sex: Female

DRUGS (1)
  1. SALAZOPYRIN 500MG [Suspect]
     Active Substance: SULFASALAZINE
     Dosage: UNK
     Dates: start: 201610

REACTIONS (2)
  - Stevens-Johnson syndrome [Unknown]
  - Oculomucocutaneous syndrome [Unknown]
